FAERS Safety Report 26088492 (Version 1)
Quarter: 2025Q4

REPORT INFORMATION
  Report Type: Spontaneous
  Country: US (occurrence: None)
  Receive Date: 20251125
  Receipt Date: 20251125
  Transmission Date: 20260118
  Serious: No
  Sender: INCYTE
  Company Number: US-INCYTE CORPORATION-2025IN012690

PATIENT
  Age: 50 Year

DRUGS (1)
  1. PEMAZYRE [Suspect]
     Active Substance: PEMIGATINIB
     Indication: Glioneuronal tumour
     Dosage: 13.5 MILLIGRAM, QD, 14 CONSECUTIVE DAYS  FOLLOWED BY 7 DAYS OFF THERAPY

REACTIONS (3)
  - Dizziness [Unknown]
  - Drug effective for unapproved indication [Unknown]
  - Off label use [Unknown]
